FAERS Safety Report 7684353-7 (Version None)
Quarter: 2011Q3

REPORT INFORMATION
  Report Type: 
  Country: None (occurrence: None)
  Receive Date: 20110816
  Receipt Date: 20110804
  Transmission Date: 20111222
  Serious: Yes (Other)
  Sender: FDA-Public Use
  Company Number: DE-BRISTOL-MYERS SQUIBB COMPANY-15950843

PATIENT
  Sex: Male

DRUGS (4)
  1. TAMSULOSIN HCL [Concomitant]
  2. METFORMIN HCL [Concomitant]
  3. ONGLYZA [Suspect]
     Dates: start: 20091001
  4. CARVEDILOL [Concomitant]

REACTIONS (2)
  - BLOOD AMYLASE INCREASED [None]
  - LIPASE INCREASED [None]
